FAERS Safety Report 15264132 (Version 1)
Quarter: 2018Q3

REPORT INFORMATION
  Report Type: Spontaneous
  Country: US (occurrence: US)
  Receive Date: 20180810
  Receipt Date: 20180810
  Transmission Date: 20181010
  Serious: Yes (Hospitalization, Disabling, Other)
  Sender: FDA-Public Use
  Company Number: US-ACCORD-070596

PATIENT
  Age: 10 Year
  Sex: Male
  Weight: 20 kg

DRUGS (1)
  1. ALLOPURINOL. [Suspect]
     Active Substance: ALLOPURINOL
     Indication: HYPOXANTHINE-GUANINE PHOSPHORIBOSYL TRANSFERASE DEFICIENCY
     Dosage: 10MG/KG

REACTIONS (3)
  - Overdose [Unknown]
  - Stag horn calculus [Recovered/Resolved]
  - Nephrocalcinosis [Recovering/Resolving]
